FAERS Safety Report 4559112-4 (Version None)
Quarter: 2005Q1

REPORT INFORMATION
  Report Type: 
  Country: None (occurrence: None)
  Receive Date: 20050124
  Receipt Date: 20050113
  Transmission Date: 20050727
  Serious: Yes (Hospitalization)
  Sender: FDA-Public Use
  Company Number: FR-AMGEN-UK107565

PATIENT
  Age: 39 Year
  Sex: Female

DRUGS (2)
  1. NEULASTA [Suspect]
     Indication: DRUG USE FOR UNKNOWN INDICATION
     Route: 058
  2. LEVOFLOXACIN [Suspect]
     Route: 048
     Dates: start: 20041122, end: 20041127

REACTIONS (1)
  - TENDONITIS [None]
